FAERS Safety Report 8780373 (Version 3)
Quarter: 2013Q1

REPORT INFORMATION
  Report Type: Spontaneous
  Country: US (occurrence: None)
  Receive Date: 20120830
  Receipt Date: 20121109
  Transmission Date: 20140127
  Serious: Yes (Hospitalization)
  Sender: FDA-Public Use
  Company Number: AUR-APL-2012-03623

PATIENT
  Age: 49 Year
  Sex: Male

DRUGS (4)
  1. AMOXICILLIN (AMOXICILLIN) [Suspect]
     Indication: HELICOBACTER GASTRITIS
  2. CLARITHROMYCIN [Suspect]
     Indication: HELICOBACTER GASTRITIS
  3. LANSOPRAZOLE (LANSOPRAZOLE) [Concomitant]
     Indication: HELICOBACTER GASTRITIS
  4. OMEPRAZOLE (OMEPRAZOLE) [Concomitant]

REACTIONS (6)
  - Dyskinesia [None]
  - Confusional state [None]
  - Lethargy [None]
  - Heart rate increased [None]
  - Sinus tachycardia [None]
  - Acute psychosis [None]
